FAERS Safety Report 7422665-2 (Version None)
Quarter: 2011Q2

REPORT INFORMATION
  Report Type: 
  Country: None (occurrence: None)
  Receive Date: 20110419
  Receipt Date: 20110408
  Transmission Date: 20111010
  Serious: Yes (Life-Threatening)
  Sender: FDA-Public Use
  Company Number: GB-ELI_LILLY_AND_COMPANY-GB201104002151

PATIENT

DRUGS (3)
  1. LITHIUM [Concomitant]
     Dosage: 600 MG, UNK
     Dates: start: 20101005
  2. ZYPREXA [Suspect]
     Dosage: 20 MG, UNK
     Route: 064
     Dates: start: 20100301
  3. VALPROATE SODIUM [Concomitant]
     Dosage: 1 G, UNK
     Route: 064
     Dates: start: 20090901, end: 20100706

REACTIONS (2)
  - HYPERINSULINAEMIA [None]
  - DRUG EXPOSURE DURING PREGNANCY [None]
